FAERS Safety Report 5650937-0 (Version None)
Quarter: 2008Q1

REPORT INFORMATION
  Report Type: 
  Country: None (occurrence: None)
  Receive Date: 20080305
  Receipt Date: 20080225
  Transmission Date: 20080703
  Serious: Yes (Other)
  Sender: FDA-Public Use
  Company Number: US-PURDUE-USA_2008_0031455

PATIENT
  Sex: Male
  Weight: 95 kg

DRUGS (3)
  1. OXYCONTIN [Suspect]
     Indication: LIMB CRUSHING INJURY
     Dosage: UNK MG, UNK
     Route: 048
     Dates: start: 19980203, end: 20000510
  2. VICODIN [Concomitant]
     Indication: DRUG USE FOR UNKNOWN INDICATION
     Dosage: 5 MG, UNK
     Route: 048
  3. PREVACID [Concomitant]
     Indication: DRUG USE FOR UNKNOWN INDICATION
     Dosage: 30 MG, DAILY
     Route: 048

REACTIONS (6)
  - ANXIETY [None]
  - GENERAL PHYSICAL HEALTH DETERIORATION [None]
  - HEPATITIS C [None]
  - MENTAL DISORDER [None]
  - NERVOUSNESS [None]
  - OVERDOSE [None]
